FAERS Safety Report 17560817 (Version 1)
Quarter: 2020Q1

REPORT INFORMATION
  Report Type: Spontaneous
  Country: US (occurrence: US)
  Receive Date: 20200312
  Receipt Date: 20200312
  Transmission Date: 20200409
  Serious: Yes (Hospitalization)
  Sender: FDA-Public Use
  Company Number: None

PATIENT
  Age: 72 Year
  Sex: Male
  Weight: 125 kg

DRUGS (1)
  1. DULOXETINE (DULOXETINE HCL 20MG CAP, ORAL) [Suspect]
     Active Substance: DULOXETINE HYDROCHLORIDE
     Indication: DEPRESSION
     Route: 048
     Dates: start: 20180514, end: 20180618

REACTIONS (3)
  - Palpitations [None]
  - Atrial flutter [None]
  - Angina pectoris [None]

NARRATIVE: CASE EVENT DATE: 20180614
